FAERS Safety Report 22205225 (Version 2)
Quarter: 2023Q2

REPORT INFORMATION
  Report Type: Spontaneous
  Country: US (occurrence: US)
  Receive Date: 20230413
  Receipt Date: 20230420
  Transmission Date: 20230722
  Serious: No
  Sender: FDA-Public Use
  Company Number: US-LUPIN PHARMACEUTICALS INC.-2023-02763

PATIENT

DRUGS (6)
  1. LISINOPRIL [Interacting]
     Active Substance: LISINOPRIL
     Indication: Hypertension
     Dosage: UNK
     Route: 065
     Dates: start: 20230117
  2. LISINOPRIL [Suspect]
     Active Substance: LISINOPRIL
     Indication: Hypertension
     Dosage: UNK
     Route: 065
  3. CELEBREX [Interacting]
     Active Substance: CELECOXIB
     Indication: Arthropathy
     Dosage: UNK, WHEN NEEDED
     Route: 065
  4. VOLTAREN [Interacting]
     Active Substance: DICLOFENAC SODIUM
     Indication: Product used for unknown indication
     Dosage: UNK
     Route: 061
  5. LEVOTHYROXINE [Concomitant]
     Active Substance: LEVOTHYROXINE
     Indication: Thyroid disorder
     Dosage: UNK
     Route: 065
  6. METOPROLOL [Concomitant]
     Active Substance: METOPROLOL
     Indication: Hypertension
     Dosage: 25 MILLIGRAM, BID (TWICE IN A DAY)
     Route: 065

REACTIONS (6)
  - Drug interaction [Unknown]
  - Tinnitus [Unknown]
  - Brain fog [Unknown]
  - Discomfort [Unknown]
  - Product dose omission issue [Unknown]
  - Wrong technique in product usage process [Unknown]
